FAERS Safety Report 9515718 (Version 2)
Quarter: 2013Q4

REPORT INFORMATION
  Report Type: Spontaneous
  Country: US (occurrence: US)
  Receive Date: 20130911
  Receipt Date: 20131002
  Transmission Date: 20140711
  Serious: Yes (Other)
  Sender: FDA-Public Use
  Company Number: US-PFIZER INC-2013260033

PATIENT
  Age: 45 Year
  Sex: Male
  Weight: 95 kg

DRUGS (7)
  1. PROCARDIA [Suspect]
     Indication: HYPERTENSION
     Dosage: 40 MG, 3X/DAY
  2. NORVASC [Concomitant]
     Dosage: UNK
  3. HYDRALAZINE [Concomitant]
     Dosage: UNK
  4. LISINOPRIL [Concomitant]
     Dosage: UNK
  5. ISORDIL [Concomitant]
     Dosage: UNK
  6. ABILIFY [Concomitant]
     Dosage: UNK
  7. XANAX [Concomitant]
     Dosage: UNK

REACTIONS (2)
  - Cerebrovascular accident [Unknown]
  - Renal disorder [Unknown]
